FAERS Safety Report 17633234 (Version 4)
Quarter: 2020Q4

REPORT INFORMATION
  Report Type: Report from Study
  Country: None (occurrence: US)
  Receive Date: 20200406
  Receipt Date: 20201102
  Transmission Date: 20210113
  Serious: No
  Sender: FDA-Public Use
  Company Number: US-BIOVITRUM-2020US1635

PATIENT
  Age: 56 Year
  Sex: Female

DRUGS (2)
  1. KINERET [Suspect]
     Active Substance: ANAKINRA
     Route: 058
     Dates: start: 20200415
  2. KINERET [Suspect]
     Active Substance: ANAKINRA
     Indication: JUVENILE IDIOPATHIC ARTHRITIS
     Route: 058
     Dates: start: 20190202

REACTIONS (19)
  - Sensation of foreign body [Unknown]
  - Ear infection [Unknown]
  - Hiatus hernia [Unknown]
  - Headache [Unknown]
  - Injection site reaction [Unknown]
  - Anxiety [Unknown]
  - Asthenia [Unknown]
  - Depression [Unknown]
  - Pain [Unknown]
  - Dry mouth [Unknown]
  - Off label use [Unknown]
  - Dry throat [Unknown]
  - Sinusitis [Unknown]
  - Product dose omission issue [Unknown]
  - Oral infection [Unknown]
  - Spinal pain [Unknown]
  - Red blood cell sedimentation rate increased [Unknown]
  - Oropharyngeal discomfort [Unknown]
  - Scar [Unknown]

NARRATIVE: CASE EVENT DATE: 20190202
